FAERS Safety Report 14853990 (Version 1)
Quarter: 2018Q2

REPORT INFORMATION
  Report Type: Spontaneous
  Country: US (occurrence: US)
  Receive Date: 20180420
  Receipt Date: 20180420
  Transmission Date: 20180711
  Serious: Yes (Disabling, Other)
  Sender: FDA-Public Use
  Company Number: None

PATIENT
  Age: 40 Year
  Sex: Male
  Weight: 78.75 kg

DRUGS (2)
  1. DULOXETINE DELAYED-RELEASE CAPSULES USP [Suspect]
     Active Substance: DULOXETINE
     Indication: NEURALGIA
     Dosage: ?          QUANTITY:1 CAPSULE(S);?
     Route: 048
  2. SULFASALAZINE. [Concomitant]
     Active Substance: SULFASALAZINE

REACTIONS (12)
  - Product substitution issue [None]
  - Fatigue [None]
  - Gastrointestinal disorder [None]
  - Nausea [None]
  - Anxiety [None]
  - Drug withdrawal syndrome [None]
  - Bowel movement irregularity [None]
  - Paraesthesia [None]
  - Heart rate increased [None]
  - Dizziness [None]
  - Vertigo [None]
  - Influenza like illness [None]

NARRATIVE: CASE EVENT DATE: 20180417
